FAERS Safety Report 6415736-0 (Version None)
Quarter: 2009Q4

REPORT INFORMATION
  Report Type: 
  Country: None (occurrence: None)
  Receive Date: 20091027
  Receipt Date: 20091014
  Transmission Date: 20100525
  Serious: Yes (Other)
  Sender: FDA-Public Use
  Company Number: US-PFIZER INC-2009249739

PATIENT
  Sex: Male
  Weight: 104.76 kg

DRUGS (1)
  1. GEODON [Suspect]
     Indication: SCHIZOPHRENIA, PARANOID TYPE
     Dosage: 80 MG, 2X/DAY
     Route: 048
     Dates: start: 20020101

REACTIONS (3)
  - DYSKINESIA [None]
  - GRUNTING [None]
  - TOURETTE'S DISORDER [None]
